FAERS Safety Report 4874819-7 (Version None)
Quarter: 2006Q1

REPORT INFORMATION
  Report Type: 
  Country: None (occurrence: None)
  Receive Date: 20060104
  Receipt Date: 20051215
  Transmission Date: 20060701
  Serious: Yes (Death)
  Sender: FDA-Public Use
  Company Number: 2005170039

PATIENT
  Sex: Female

DRUGS (1)
  1. CELEBREX [Suspect]
     Indication: PAIN
     Dosage: 200 MG (200 MG DAILY INTERVAL EVERYDAY) ORAL
     Route: 048
     Dates: end: 20051107

REACTIONS (1)
  - DEATH [None]
